FAERS Safety Report 5762116-7 (Version None)
Quarter: 2008Q2

REPORT INFORMATION
  Report Type: 
  Country: None (occurrence: None)
  Receive Date: 20080604
  Receipt Date: 20080520
  Transmission Date: 20081010
  Serious: Yes (Other)
  Sender: FDA-Public Use
  Company Number: 8019658

PATIENT
  Age: 33 Year
  Sex: Female

DRUGS (3)
  1. PREDNISOLONE [Suspect]
     Indication: UVEITIS
  2. METFORMIN [Suspect]
     Indication: DIABETES MELLITUS
     Dosage: 1 G 2/D;PO
     Route: 048
  3. ACTOS [Suspect]
     Dosage: 45 MG 1/D;

REACTIONS (5)
  - DIABETES MELLITUS INADEQUATE CONTROL [None]
  - MACULAR OEDEMA [None]
  - RETINAL ANEURYSM [None]
  - RETINAL EXUDATES [None]
  - VISUAL DISTURBANCE [None]
